FAERS Safety Report 13791778 (Version 2)
Quarter: 2017Q4

REPORT INFORMATION
  Report Type: Report from Study
  Country: US (occurrence: US)
  Receive Date: 20170725
  Receipt Date: 20171012
  Transmission Date: 20180320
  Serious: Yes (Other)
  Sender: FDA-Public Use
  Company Number: US-ACTELION-A-NJ2017-157184

PATIENT
  Age: 70 Year
  Sex: Female
  Weight: 46.71 kg

DRUGS (9)
  1. REMERON [Concomitant]
     Active Substance: MIRTAZAPINE
     Dosage: UNK
  2. ALDACTONE [Concomitant]
     Active Substance: SPIRONOLACTONE
     Dosage: UNK
  3. KLONOPIN [Concomitant]
     Active Substance: CLONAZEPAM
     Dosage: UNK
  4. OPSUMIT [Suspect]
     Active Substance: MACITENTAN
     Indication: PULMONARY ARTERIAL HYPERTENSION
     Dosage: 10 MG, QD
     Route: 048
  5. ADCIRCA [Concomitant]
     Active Substance: TADALAFIL
  6. COREG [Concomitant]
     Active Substance: CARVEDILOL
     Dosage: UNK
  7. REMODULIN [Concomitant]
     Active Substance: TREPROSTINIL
  8. ZOLOFT [Concomitant]
     Active Substance: SERTRALINE HYDROCHLORIDE
     Dosage: UNK
  9. COUMADIN [Concomitant]
     Active Substance: WARFARIN SODIUM

REACTIONS (2)
  - Wrist fracture [Recovered/Resolved]
  - Fall [Recovered/Resolved]
